FAERS Safety Report 21131141 (Version 3)
Quarter: 2022Q4

REPORT INFORMATION
  Report Type: Spontaneous
  Country: US (occurrence: US)
  Receive Date: 20220726
  Receipt Date: 20221214
  Transmission Date: 20230113
  Serious: Yes (Other)
  Sender: FDA-Public Use
  Company Number: US-BAYER-2022A102248

PATIENT
  Age: 45 Year
  Sex: Female
  Weight: 64.5 kg

DRUGS (1)
  1. MIRENA [Suspect]
     Active Substance: LEVONORGESTREL
     Indication: Contraception
     Dosage: 20?G/DAY
     Route: 015
     Dates: start: 20180302

REACTIONS (4)
  - Uterine perforation [Recovered/Resolved with Sequelae]
  - Abdominal pain [Recovered/Resolved with Sequelae]
  - Uterine haemorrhage [Recovered/Resolved with Sequelae]
  - Vaginal odour [Recovered/Resolved with Sequelae]

NARRATIVE: CASE EVENT DATE: 20200625
